FAERS Safety Report 10236440 (Version 1)
Quarter: 2014Q2

REPORT INFORMATION
  Report Type: Spontaneous
  Country: FR (occurrence: FR)
  Receive Date: 20140613
  Receipt Date: 20140613
  Transmission Date: 20141212
  Serious: Yes (Hospitalization)
  Sender: FDA-Public Use
  Company Number: FR-ROCHE-1417048

PATIENT
  Age: 57 Year
  Sex: Male

DRUGS (4)
  1. VALIUM [Suspect]
     Indication: PRODUCT USED FOR UNKNOWN INDICATION
     Route: 048
     Dates: start: 20140401
  2. VALIUM [Suspect]
     Route: 048
     Dates: start: 20140402
  3. VALIUM [Suspect]
     Route: 048
     Dates: start: 20140403
  4. VALIUM [Suspect]
     Route: 048
     Dates: start: 20140404, end: 20140405

REACTIONS (2)
  - Confusional state [Recovered/Resolved]
  - Gait disturbance [Recovered/Resolved]
